FAERS Safety Report 19971631 (Version 3)
Quarter: 2022Q1

REPORT INFORMATION
  Report Type: Spontaneous
  Country: US (occurrence: US)
  Receive Date: 20211019
  Receipt Date: 20220119
  Transmission Date: 20220423
  Serious: No
  Sender: FDA-Public Use
  Company Number: US-SA-SAC20211015000545

PATIENT
  Age: 53 Year
  Sex: Female

DRUGS (2)
  1. DUPIXENT [Suspect]
     Active Substance: DUPILUMAB
     Dosage: 300 MG, FREQUENCY OTHER
     Route: 058
     Dates: start: 202107
  2. ZYRTECNO [Concomitant]

REACTIONS (5)
  - Injection site pain [Unknown]
  - Dry eye [Unknown]
  - Eye pruritus [Unknown]
  - Eye irritation [Unknown]
  - Weight increased [Unknown]

NARRATIVE: CASE EVENT DATE: 20210701
